FAERS Safety Report 7308971-0 (Version None)
Quarter: 2011Q1

REPORT INFORMATION
  Report Type: 
  Country: None (occurrence: None)
  Receive Date: 20110223
  Receipt Date: 20110201
  Transmission Date: 20110831
  Serious: Yes (Hospitalization, Other)
  Sender: FDA-Public Use
  Company Number: US-BAYER-201031053NA

PATIENT
  Sex: Female
  Weight: 77.098 kg

DRUGS (7)
  1. YAZ [Suspect]
     Indication: CONTRACEPTION
     Dosage: UNK
     Route: 048
     Dates: start: 20070101, end: 20100101
  2. DOXYCLINE [Concomitant]
     Indication: ACNE
  3. UNCODEABLE ^UNCLASSIFIABLE^ [Concomitant]
  4. UNCODEABLE ^UNCLASSIFIABLE^ [Concomitant]
     Indication: ACNE
  5. M.V.I. [Concomitant]
  6. DIFFERIN [Concomitant]
     Indication: ACNE
  7. PLEXION [Concomitant]

REACTIONS (8)
  - PLEURITIC PAIN [None]
  - NAUSEA [None]
  - ATELECTASIS [None]
  - CHEST PAIN [None]
  - DYSPNOEA EXERTIONAL [None]
  - PULMONARY EMBOLISM [None]
  - DIZZINESS [None]
  - PLEURAL EFFUSION [None]
